FAERS Safety Report 13565465 (Version 2)
Quarter: 2017Q3

REPORT INFORMATION
  Report Type: Spontaneous
  Country: US (occurrence: US)
  Receive Date: 20170519
  Receipt Date: 20170703
  Transmission Date: 20171127
  Serious: Yes (Hospitalization, Other)
  Sender: FDA-Public Use
  Company Number: US-ALLERGAN-1720267US

PATIENT
  Age: 69 Year
  Sex: Female

DRUGS (1)
  1. NORCO [Suspect]
     Active Substance: ACETAMINOPHEN\HYDROCODONE BITARTRATE
     Indication: PAIN
     Dosage: 10/325 MG, TID
     Route: 048
     Dates: start: 1994

REACTIONS (7)
  - Cataract [Unknown]
  - Hiatus hernia [Unknown]
  - Eye pruritus [Unknown]
  - Eye irritation [Unknown]
  - Blood glucose increased [Unknown]
  - Visual impairment [Unknown]
  - Dry eye [Unknown]

NARRATIVE: CASE EVENT DATE: 2014
